FAERS Safety Report 8837851 (Version 4)
Quarter: 2013Q1

REPORT INFORMATION
  Report Type: Report from Study
  Country: US (occurrence: US)
  Receive Date: 20121012
  Receipt Date: 20130311
  Transmission Date: 20140127
  Serious: Yes (Hospitalization, Other)
  Sender: FDA-Public Use
  Company Number: US-GLAXOSMITHKLINE-A0993881A

PATIENT
  Age: 46 Year
  Sex: Male
  Weight: 84.8 kg

DRUGS (17)
  1. OFATUMUMAB [Suspect]
     Indication: NON-HODGKIN^S LYMPHOMA
     Dosage: 1000MG WEEKLY
     Route: 042
     Dates: start: 20120901, end: 20120927
  2. ACYCLOVIR [Concomitant]
     Dosage: 800MG TWICE PER DAY
     Route: 048
  3. FLUCONAZOLE [Concomitant]
     Dosage: 200MG PER DAY
     Route: 048
  4. LANSOPRAZOLE [Concomitant]
     Dosage: 30MG PER DAY
     Route: 048
  5. MULTIVITAMIN [Concomitant]
     Dosage: 1TAB PER DAY
     Route: 048
  6. URSODIOL [Concomitant]
     Dosage: 300MG THREE TIMES PER DAY
     Route: 048
  7. ZOLPIDEM [Concomitant]
     Dosage: 10MG AT NIGHT
     Route: 048
  8. ZOFRAN [Concomitant]
     Dosage: 8MG AS REQUIRED
     Route: 048
  9. PROCHLORPERAZINE [Concomitant]
     Dosage: 10MG AS REQUIRED
     Route: 048
  10. SUCRALFATE [Concomitant]
     Dosage: 1G THREE TIMES PER DAY
  11. MAGNESIUM [Concomitant]
     Dosage: 400MG TWICE PER DAY
     Route: 048
  12. HYDROCORTISONE TOPICAL [Concomitant]
     Route: 061
  13. UNKNOWN DRUG [Concomitant]
  14. DOCUSATE [Concomitant]
     Dosage: 100MG TWICE PER DAY
  15. PREDNISONE [Concomitant]
     Dosage: 20MG TWICE PER DAY
  16. POTASSIUM CHLORIDE [Concomitant]
     Dosage: 20MEQ TWICE PER DAY
     Route: 048
  17. PREDNISONE [Concomitant]
     Dosage: 100MG PER DAY

REACTIONS (5)
  - Febrile neutropenia [Recovering/Resolving]
  - Nausea [Recovering/Resolving]
  - Decreased appetite [Recovering/Resolving]
  - Vomiting [Recovering/Resolving]
  - Hepatic enzyme abnormal [Recovering/Resolving]
